FAERS Safety Report 4652596-2 (Version None)
Quarter: 2005Q2

REPORT INFORMATION
  Report Type: 
  Country: None (occurrence: None)
  Receive Date: 20050502
  Receipt Date: 20050413
  Transmission Date: 20051028
  Serious: Yes (Other)
  Sender: FDA-Public Use
  Company Number: DE-2005-002759

PATIENT
  Age: 61 Year
  Sex: Male
  Weight: 87 kg

DRUGS (5)
  1. ULTRAVIST 370 [Suspect]
     Indication: CATHETERISATION CARDIAC
     Dosage: 140 ML, 1 DOSE, INTRACORONARY
     Route: 022
     Dates: start: 20050225, end: 20050225
  2. ACETYLSALICYLIC ACID SRT [Concomitant]
  3. ISCOVER (CLOPIDOGREL SULFATE) [Concomitant]
  4. CLEXANE/GFR/(HEPARIN-FRACTION, SODIUM SALT) [Concomitant]
  5. MICARDIS [Concomitant]

REACTIONS (1)
  - ARTERIOSPASM CORONARY [None]
